FAERS Safety Report 12207641 (Version 2)
Quarter: 2016Q1

REPORT INFORMATION
  Report Type: Spontaneous
  Country: US (occurrence: US)
  Receive Date: 20160324
  Receipt Date: 20160331
  Transmission Date: 20160526
  Serious: No
  Sender: FDA-Public Use
  Company Number: US-NOVOPROD-484725

PATIENT
  Age: 74 Year
  Sex: Female
  Weight: 77.98 kg

DRUGS (1)
  1. VICTOZA [Suspect]
     Active Substance: LIRAGLUTIDE
     Indication: TYPE 2 DIABETES MELLITUS
     Dosage: 0.6 MG QD
     Route: 058
     Dates: start: 201512, end: 20160318

REACTIONS (2)
  - Condition aggravated [Recovering/Resolving]
  - Chronic obstructive pulmonary disease [Recovering/Resolving]
